FAERS Safety Report 12890949 (Version 1)
Quarter: 2016Q4

REPORT INFORMATION
  Report Type: Spontaneous
  Country: US (occurrence: US)
  Receive Date: 20161027
  Receipt Date: 20161027
  Transmission Date: 20170207
  Serious: Yes (Life-Threatening, Hospitalization, Other)
  Sender: FDA-Public Use
  Company Number: US-EDGEMONT-2016EDG00030

PATIENT
  Age: 21 Year
  Sex: Female

DRUGS (1)
  1. BUPROPION. [Suspect]
     Active Substance: BUPROPION
     Dosage: 13.5 G, ONCE
     Route: 048

REACTIONS (12)
  - Sinus tachycardia [Recovered/Resolved]
  - Toxic encephalopathy [Recovered/Resolved]
  - Electrocardiogram QT prolonged [Recovered/Resolved]
  - Hypotension [Recovered/Resolved]
  - Generalised tonic-clonic seizure [Recovered/Resolved]
  - Suicide attempt [Recovered/Resolved]
  - Lactic acidosis [Recovered/Resolved]
  - Transaminases increased [Recovered/Resolved]
  - Intentional overdose [Recovered/Resolved]
  - Electrocardiogram QRS complex prolonged [Recovered/Resolved]
  - Sinus bradycardia [Recovered/Resolved]
  - Cardiotoxicity [Recovered/Resolved]
